FAERS Safety Report 9746566 (Version 1)
Quarter: 2013Q4

REPORT INFORMATION
  Report Type: Spontaneous
  Country: ES (occurrence: ES)
  Receive Date: 20131211
  Receipt Date: 20131211
  Transmission Date: 20140711
  Serious: Yes (Hospitalization)
  Sender: FDA-Public Use
  Company Number: ES-ASTRAZENECA-2013SE90383

PATIENT
  Age: 58 Year
  Sex: Male

DRUGS (4)
  1. SEROQUEL PROLONG [Suspect]
     Indication: DEPENDENT PERSONALITY DISORDER
     Route: 048
  2. SEROQUEL PROLONG [Suspect]
     Indication: DEPENDENT PERSONALITY DISORDER
     Route: 048
     Dates: end: 201309
  3. SEROQUEL PROLONG [Suspect]
     Indication: DEPENDENT PERSONALITY DISORDER
     Route: 048
     Dates: start: 201309
  4. PREGABALIN [Concomitant]
     Indication: DEPENDENT PERSONALITY DISORDER
     Route: 048

REACTIONS (2)
  - Drug dependence [Unknown]
  - Hair growth abnormal [Not Recovered/Not Resolved]
